FAERS Safety Report 19515018 (Version 2)
Quarter: 2021Q3

REPORT INFORMATION
  Report Type: Spontaneous
  Country: US (occurrence: US)
  Receive Date: 20210709
  Receipt Date: 20210923
  Transmission Date: 20211014
  Serious: Yes (Hospitalization, Other)
  Sender: FDA-Public Use
  Company Number: US-TEVA-2021-US-1930378

PATIENT
  Age: 67 Year
  Sex: Male

DRUGS (1)
  1. CINQAIR [Suspect]
     Active Substance: RESLIZUMAB
     Dosage: 100 MG/10 ML  IV INFUSION
     Route: 042
     Dates: start: 20210604

REACTIONS (5)
  - Type 2 diabetes mellitus [Unknown]
  - Dehydration [Unknown]
  - Blood glucose abnormal [Unknown]
  - Vomiting [Unknown]
  - Nausea [Unknown]

NARRATIVE: CASE EVENT DATE: 202106
